FAERS Safety Report 7144937-1 (Version None)
Quarter: 2010Q4

REPORT INFORMATION
  Report Type: 
  Country: None (occurrence: None)
  Receive Date: 20101208
  Receipt Date: 20101202
  Transmission Date: 20110411
  Serious: Yes (Death)
  Sender: FDA-Public Use
  Company Number: US-CELGENEUS-163-21880-10081509

PATIENT
  Sex: Male

DRUGS (1)
  1. REVLIMID [Suspect]
     Indication: LYMPHOMA
     Route: 048
     Dates: start: 20100604, end: 20100101

REACTIONS (3)
  - DRUG INEFFECTIVE [None]
  - METASTATIC MALIGNANT MELANOMA [None]
  - NON-HODGKIN'S LYMPHOMA [None]
